FAERS Safety Report 8708262 (Version 3)
Quarter: 2012Q4

REPORT INFORMATION
  Report Type: 
  Country: US (occurrence: US)
  Receive Date: 20120806
  Receipt Date: 20121227
  Transmission Date: 20130627
  Serious: Yes (Hospitalization)
  Sender: FDA-Public Use
  Company Number: US-BAYER-2012-076319

PATIENT
  Age: 43 Year
  Sex: Female
  Weight: 53.52 kg

DRUGS (11)
  1. YAZ [Suspect]
     Indication: CONTRACEPTION
     Dosage: UNK
     Dates: start: 20071120, end: 20091111
  2. YAZ [Suspect]
     Indication: PREMENSTRUAL SYNDROME
  3. RELPAX [Concomitant]
     Indication: MIGRAINE
     Dosage: 40 mg, QD
     Dates: start: 20090819
  4. AMOXICILLIN [Concomitant]
     Dosage: 250 mg, UNK
     Dates: start: 20090923
  5. TAZORAC [Concomitant]
     Dosage: 0.05% ex crea apply to face as needed
     Dates: start: 20091012
  6. INDOMETHACIN [Concomitant]
     Indication: MIGRAINE
     Dosage: 25 mg, TID
     Route: 048
     Dates: start: 20091111
  7. AMBIEN [Concomitant]
     Dosage: 10 mg, HS as needed
  8. KLONOPIN [Concomitant]
     Dosage: 1 mg, BID as needed
  9. DILAUDID [Concomitant]
     Indication: PAIN
  10. ZOFRAN [Concomitant]
  11. MORPHINE [Concomitant]

REACTIONS (13)
  - Colitis ischaemic [None]
  - Thrombosis [None]
  - Abdominal pain [None]
  - Abdominal pain lower [None]
  - Vomiting [None]
  - Diarrhoea [None]
  - Haematochezia [None]
  - Pain [None]
  - Injury [None]
  - General physical health deterioration [None]
  - Anxiety [None]
  - Emotional distress [None]
  - Large intestinal ulcer [None]
